FAERS Safety Report 17165344 (Version 1)
Quarter: 2019Q4

REPORT INFORMATION
  Report Type: Spontaneous
  Country: FR (occurrence: FR)
  Receive Date: 20191217
  Receipt Date: 20191217
  Transmission Date: 20200122
  Serious: Yes (Hospitalization)
  Sender: FDA-Public Use
  Company Number: FR-PFIZER INC-2019536039

PATIENT
  Age: 14 Year
  Sex: Female
  Weight: 43.6 kg

DRUGS (3)
  1. SERTRALINE [Suspect]
     Active Substance: SERTRALINE HYDROCHLORIDE
     Dosage: 700 MG, UNK
     Route: 048
     Dates: start: 20190511, end: 20190511
  2. PARACETAMOL [Suspect]
     Active Substance: ACETAMINOPHEN
     Dosage: 4000 MG, UNK
     Route: 048
     Dates: start: 20190511, end: 20190511
  3. HYDROXYZINE [Suspect]
     Active Substance: HYDROXYZINE HYDROCHLORIDE
     Dosage: 375 MG, UNK
     Route: 048
     Dates: start: 20190511, end: 20190511

REACTIONS (3)
  - Disease recurrence [Unknown]
  - Poisoning deliberate [Unknown]
  - Somnolence [Recovered/Resolved]

NARRATIVE: CASE EVENT DATE: 20190511
